FAERS Safety Report 6140976-8 (Version None)
Quarter: 2009Q2

REPORT INFORMATION
  Report Type: 
  Country: None (occurrence: None)
  Receive Date: 20090402
  Receipt Date: 20090327
  Transmission Date: 20091009
  Serious: Yes (Other)
  Sender: FDA-Public Use
  Company Number: US-ASTRAZENECA-2008UW11244

PATIENT
  Age: 47 Year
  Sex: Female
  Weight: 85.3 kg

DRUGS (4)
  1. SEROQUEL [Suspect]
     Indication: INSOMNIA
     Dosage: 1/2 TAB EVERY DAY; 1 TAB EVERY NIGHT AT BEDTIME
     Route: 048
     Dates: start: 20000901, end: 20050901
  2. SEROQUEL [Suspect]
     Indication: HALLUCINATION, AUDITORY
     Dosage: 1/2 TAB EVERY DAY; 1 TAB EVERY NIGHT AT BEDTIME
     Route: 048
     Dates: start: 20000901, end: 20050901
  3. RELACORE [Concomitant]
     Dates: start: 20060501, end: 20070101
  4. PROZAC [Concomitant]
     Dates: start: 19950101

REACTIONS (17)
  - AGITATION [None]
  - CONSTIPATION [None]
  - DIABETES MELLITUS [None]
  - DIARRHOEA [None]
  - DIZZINESS [None]
  - EYE SWELLING [None]
  - GASTROENTERITIS [None]
  - HAEMATOMA [None]
  - INSOMNIA [None]
  - IRRITABILITY [None]
  - IRRITABLE BOWEL SYNDROME [None]
  - LOSS OF CONSCIOUSNESS [None]
  - MOUTH INJURY [None]
  - OBESITY [None]
  - TOOTH FRACTURE [None]
  - VOMITING [None]
  - WEIGHT INCREASED [None]
